FAERS Safety Report 7772030-3 (Version None)
Quarter: 2011Q3

REPORT INFORMATION
  Report Type: 
  Country: None (occurrence: None)
  Receive Date: 20110922
  Receipt Date: 20110426
  Transmission Date: 20111222
  Serious: No
  Sender: FDA-Public Use
  Company Number: US-ASTRAZENECA-2011SE24872

PATIENT
  Age: 51 Year
  Sex: Male

DRUGS (3)
  1. SEROQUEL [Suspect]
     Route: 048
  2. ALTERNATIVE FOR SEROQUEL [Suspect]
  3. SEROQUEL [Suspect]
     Route: 048

REACTIONS (5)
  - HEART RATE ABNORMAL [None]
  - INSOMNIA [None]
  - DRUG DOSE OMISSION [None]
  - PSYCHOTIC DISORDER [None]
  - PULSE ABNORMAL [None]
